FAERS Safety Report 8428960-2 (Version None)
Quarter: 2012Q2

REPORT INFORMATION
  Report Type: 
  Country: None (occurrence: None)
  Receive Date: 20120612
  Receipt Date: 20120606
  Transmission Date: 20120825
  Serious: Yes (Death)
  Sender: FDA-Public Use
  Company Number: CN-ASTELLAS-2012JP005152

PATIENT
  Sex: Female

DRUGS (3)
  1. PREDNISONE [Concomitant]
     Route: 065
  2. TACROLIMUS [Suspect]
     Indication: LIVER TRANSPLANT
     Dosage: UNK
     Route: 048
     Dates: start: 20050415
  3. MYCOPHENOLATE MOFETIL [Concomitant]
     Route: 065

REACTIONS (1)
  - DEATH [None]
